FAERS Safety Report 7815905-9 (Version None)
Quarter: 2011Q4

REPORT INFORMATION
  Report Type: 
  Country: None (occurrence: None)
  Receive Date: 20111014
  Receipt Date: 20111011
  Transmission Date: 20120403
  Serious: Yes (Death, Hospitalization, Other)
  Sender: FDA-Public Use
  Company Number: IT-ABBOTT-11P-083-0856079-00

PATIENT
  Sex: Female
  Weight: 76 kg

DRUGS (7)
  1. METHOTREXATE [Concomitant]
     Indication: RHEUMATOID ARTHRITIS
     Route: 030
     Dates: end: 20110826
  2. HUMIRA [Suspect]
     Route: 058
     Dates: start: 20110401, end: 20110826
  3. PREDNISONE [Concomitant]
     Indication: RHEUMATOID ARTHRITIS
     Route: 048
  4. MEDROL [Concomitant]
     Indication: PRODUCT USED FOR UNKNOWN INDICATION
     Dates: start: 20081111
  5. HUMIRA [Suspect]
     Route: 058
     Dates: end: 20110826
  6. HUMIRA [Suspect]
     Indication: RHEUMATOID ARTHRITIS
     Route: 058
     Dates: start: 20081111, end: 20100929
  7. LEFLUNOMIDE [Concomitant]
     Indication: PRODUCT USED FOR UNKNOWN INDICATION
     Dates: start: 20081111, end: 20100929

REACTIONS (17)
  - ARTHRITIS [None]
  - GAIT DISTURBANCE [None]
  - PYREXIA [None]
  - MENINGITIS LEPTOSPIRAL [None]
  - COMA [None]
  - PRURITUS [None]
  - COGNITIVE DISORDER [None]
  - ABNORMAL BEHAVIOUR [None]
  - FOOD AVERSION [None]
  - JOINT SWELLING [None]
  - ARTHRALGIA [None]
  - CARDIAC ARREST [None]
  - QUADRIPLEGIA [None]
  - RASH [None]
  - JOINT WARMTH [None]
  - LOSS OF CONSCIOUSNESS [None]
  - Q FEVER [None]
